FAERS Safety Report 24612397 (Version 2)
Quarter: 2024Q4

REPORT INFORMATION
  Report Type: Spontaneous
  Country: GB (occurrence: GB)
  Receive Date: 20241113
  Receipt Date: 20241202
  Transmission Date: 20250115
  Serious: Yes (Hospitalization, Other)
  Sender: Vantive US Healthcare
  Company Number: GB-VANTIVE-2024VAN020905

PATIENT
  Sex: Male
  Weight: 114 kg

DRUGS (1)
  1. EXTRANEAL [Suspect]
     Active Substance: CALCIUM CHLORIDE\ICODEXTRIN\MAGNESIUM CHLORIDE\SODIUM CHLORIDE\SODIUM LACTATE
     Dosage: 1.5 LITERS OF 1 BAG PER DAY
     Route: 033
     Dates: start: 20241102, end: 20241103

REACTIONS (4)
  - Hypersensitivity [Recovered/Resolved]
  - Peritoneal cloudy effluent [Unknown]
  - Inflammatory marker decreased [Unknown]
  - White blood cell count decreased [Unknown]
